FAERS Safety Report 9495708 (Version 1)
Quarter: 2013Q3

REPORT INFORMATION
  Report Type: Spontaneous
  Country: US (occurrence: US)
  Receive Date: 20130903
  Receipt Date: 20130903
  Transmission Date: 20140515
  Serious: Yes (Death, Other)
  Sender: FDA-Public Use
  Company Number: US-ROCHE-1266852

PATIENT
  Age: 19 Year
  Sex: Female

DRUGS (4)
  1. VALIUM [Suspect]
     Indication: DRUG ABUSE
     Route: 065
     Dates: end: 20081001
  2. PERCOCET [Suspect]
     Indication: PRODUCT USED FOR UNKNOWN INDICATION
     Route: 065
  3. COCAINE [Suspect]
     Indication: DRUG ABUSE
     Route: 065
     Dates: end: 20081001
  4. OPANA ER [Suspect]
     Indication: DRUG ABUSE
     Route: 065

REACTIONS (6)
  - Respiratory failure [Fatal]
  - Toxicity to various agents [Fatal]
  - Overdose [Fatal]
  - Wrong technique in drug usage process [Unknown]
  - Incorrect route of drug administration [Unknown]
  - Drug abuse [Unknown]
